FAERS Safety Report 25165124 (Version 4)
Quarter: 2025Q2

REPORT INFORMATION
  Report Type: Spontaneous
  Country: US (occurrence: US)
  Receive Date: 20250407
  Receipt Date: 20250428
  Transmission Date: 20250716
  Serious: No
  Sender: ASTELLAS
  Company Number: US-ASTELLAS-2024-AER-025261

PATIENT
  Age: 89 Year
  Sex: Female

DRUGS (1)
  1. IZERVAY [Suspect]
     Active Substance: AVACINCAPTAD PEGOL SODIUM
     Indication: Dry age-related macular degeneration
     Dosage: 2 MG EVERY MONTH, IN RIGHT EYE (OD)
     Dates: start: 202410

REACTIONS (1)
  - Intraocular pressure increased [Unknown]
